FAERS Safety Report 10818856 (Version 1)
Quarter: 2015Q1

REPORT INFORMATION
  Report Type: Report from Study
  Country: US (occurrence: US)
  Receive Date: 20150218
  Receipt Date: 20150218
  Transmission Date: 20150721
  Serious: No
  Sender: FDA-Public Use
  Company Number: US-ABBVIE-14K-163-1293640-00

PATIENT
  Age: 73 Year
  Sex: Female

DRUGS (7)
  1. PREDNISONE. [Concomitant]
     Active Substance: PREDNISONE
     Indication: ARTHRITIS
     Dosage: TAPERING DOSE
  2. GABAPENTIN. [Concomitant]
     Active Substance: GABAPENTIN
     Indication: ARTHRALGIA
     Dosage: AT BED TIME
  3. BLOOD PRESSURE PILL [Concomitant]
     Indication: PRODUCT USED FOR UNKNOWN INDICATION
  4. HUMIRA [Suspect]
     Active Substance: ADALIMUMAB
     Indication: RHEUMATOID ARTHRITIS
     Dosage: INITIAL DOSE
     Route: 065
     Dates: start: 20141002
  5. WATER PILL [Concomitant]
     Active Substance: UNSPECIFIED INGREDIENT
     Indication: PRODUCT USED FOR UNKNOWN INDICATION
  6. WARFARIN [Concomitant]
     Active Substance: WARFARIN
     Indication: ANTICOAGULANT THERAPY
     Dosage: AT BED TIME
  7. NEXIUM [Concomitant]
     Active Substance: ESOMEPRAZOLE MAGNESIUM
     Indication: GASTRIC DISORDER

REACTIONS (4)
  - Fatigue [Not Recovered/Not Resolved]
  - Tinnitus [Not Recovered/Not Resolved]
  - Dizziness [Not Recovered/Not Resolved]
  - Dyspnoea exertional [Not Recovered/Not Resolved]

NARRATIVE: CASE EVENT DATE: 20141002
